FAERS Safety Report 6169206-8 (Version None)
Quarter: 2009Q2

REPORT INFORMATION
  Report Type: 
  Country: None (occurrence: None)
  Receive Date: 20090427
  Receipt Date: 20090416
  Transmission Date: 20091009
  Serious: Yes (Death, Hospitalization)
  Sender: FDA-Public Use
  Company Number: PH-BAXTER-2009BH006208

PATIENT
  Age: 35 Year
  Sex: Male

DRUGS (1)
  1. DIANEAL [Suspect]
     Indication: RENAL DISORDER
     Route: 033
     Dates: start: 20081107, end: 20090404

REACTIONS (5)
  - ABDOMINAL PAIN [None]
  - CARDIO-RESPIRATORY ARREST [None]
  - MELAENA [None]
  - MULTI-ORGAN FAILURE [None]
  - RENAL FAILURE CHRONIC [None]
